FAERS Safety Report 9201905 (Version 2)
Quarter: 2013Q2

REPORT INFORMATION
  Report Type: Spontaneous
  Country: US (occurrence: US)
  Receive Date: 20130401
  Receipt Date: 20130507
  Transmission Date: 20140414
  Serious: Yes (Disabling, Other)
  Sender: FDA-Public Use
  Company Number: US-PFIZER INC-2013103167

PATIENT
  Age: 49 Year
  Sex: Female
  Weight: 90.7 kg

DRUGS (24)
  1. LIPITOR [Suspect]
     Indication: BLOOD CHOLESTEROL INCREASED
     Dosage: 10 MG, UNK
     Dates: start: 20111118, end: 20120529
  2. LIPITOR [Suspect]
     Dosage: 20 MG, UNK
     Dates: start: 20120530
  3. LIPITOR [Suspect]
     Dosage: 10 MG, UNK
     Dates: start: 20120711, end: 20120807
  4. PRAVASTATIN SODIUM [Suspect]
     Dosage: UNK
     Dates: start: 20120822, end: 20120827
  5. NORVASC [Concomitant]
     Indication: BLOOD PRESSURE ABNORMAL
     Dosage: 10 MG, DAILY
  6. PROTONIX [Concomitant]
     Indication: GASTROOESOPHAGEAL REFLUX DISEASE
     Dosage: 40 MG, 2X/DAY
     Route: 048
  7. LYRICA [Concomitant]
     Dosage: 150 MG, 2X/DAY
     Route: 048
  8. SUMATRIPTAN [Concomitant]
     Indication: HEADACHE
     Dosage: 100 MG, (USE AS DIRECTED)
     Route: 048
  9. DICYCLOMINE [Concomitant]
     Dosage: 10 MG, 3X/DAY
     Route: 048
  10. ATENOLOL [Concomitant]
     Dosage: 1.5 DF, DAILY
     Route: 048
  11. AMLODIPINE [Concomitant]
     Dosage: 10 MG, 1X/DAY (TAKE 1 TAB)
     Route: 048
  12. HYDROCHLOROTHIAZIDE [Concomitant]
     Dosage: 50 MG, 1X/DAY
     Route: 048
  13. CYCLOBENZAPRINE [Concomitant]
     Indication: MUSCLE SPASMS
     Dosage: 10 MG, 3X/DAY (AS NEEDED)
     Route: 048
  14. RANITIDINE HYDROCHLORIDE [Concomitant]
     Dosage: UNK
  15. DONEPEZIL [Concomitant]
     Dosage: 10 MG, 1X/DAY (NIGHTLY)
     Route: 048
  16. METHYLPHENIDATE [Concomitant]
     Dosage: 20 MG, 2X/DAY (TAKE 1 TABLET)
     Route: 048
  17. OXYBUTYNIN [Concomitant]
     Dosage: 5 MG, 2X/DAY
     Route: 048
  18. COPAXONE [Concomitant]
     Dosage: 1 ML, DAILY
     Route: 058
  19. VITAMIN D [Concomitant]
     Dosage: 2000 UNIT DAILY
     Route: 048
  20. FLUOXETINE HYDROCHLORIDE [Concomitant]
     Dosage: 60 MG, DAILY
     Route: 048
  21. PROCHLORPERAZINE [Concomitant]
     Dosage: 10 MG, UNK
     Route: 048
  22. COMPAZINE [Concomitant]
     Indication: HEADACHE
     Dosage: 10 MG, UNK
     Route: 048
  23. PENNSAID [Concomitant]
     Dosage: 40 GTT, 4X/DAY
  24. IMITREX [Concomitant]
     Indication: MIGRAINE
     Dosage: 5 MG/ACT NA SOLN
     Route: 045

REACTIONS (19)
  - Musculoskeletal discomfort [Unknown]
  - Musculoskeletal discomfort [Unknown]
  - Hypokinesia [Unknown]
  - Activities of daily living impaired [Unknown]
  - Movement disorder [Unknown]
  - Arthropathy [Unknown]
  - Chest pain [Unknown]
  - Pain [Unknown]
  - Myalgia [Recovering/Resolving]
  - Limb discomfort [Unknown]
  - Weight increased [Unknown]
  - Musculoskeletal discomfort [Unknown]
  - Pain in extremity [Unknown]
  - Intervertebral disc protrusion [Unknown]
  - Exercise tolerance decreased [Unknown]
  - Back pain [Recovering/Resolving]
  - Dysphagia [Unknown]
  - Chest pain [Unknown]
  - Dizziness [Unknown]
